FAERS Safety Report 14659276 (Version 2)
Quarter: 2018Q2

REPORT INFORMATION
  Report Type: Spontaneous
  Country: TR (occurrence: TR)
  Receive Date: 20180320
  Receipt Date: 20180517
  Transmission Date: 20180711
  Serious: Yes (Death)
  Sender: FDA-Public Use
  Company Number: PHHY2018TR045549

PATIENT
  Age: 65 Day
  Sex: Female

DRUGS (1)
  1. BAKSO (BIFIDOBACTERIUM ANIMALIS\LACTOBACILLUS ACIDOPHILUS) [Suspect]
     Active Substance: PROBIOTICS NOS
     Indication: GASTRIC DISORDER
     Dosage: 6 DRP, QD
     Route: 065

REACTIONS (5)
  - Insomnia [Fatal]
  - Drug administered to patient of inappropriate age [Fatal]
  - Flatulence [Fatal]
  - Syncope [Fatal]
  - Drug ineffective [Fatal]
